FAERS Safety Report 17163029 (Version 2)
Quarter: 2020Q4

REPORT INFORMATION
  Report Type: Spontaneous
  Country: IT (occurrence: IT)
  Receive Date: 20191217
  Receipt Date: 20201013
  Transmission Date: 20210113
  Serious: Yes (Other)
  Sender: FDA-Public Use
  Company Number: IT-TEVA-2019-IT-1152411

PATIENT
  Age: 52 Year
  Sex: Female

DRUGS (3)
  1. MYOCET 50 MG POWDER, DISPERSION AND SOLVENT FOR CONCENTRATE FOR DISPER [Suspect]
     Active Substance: DOXORUBICIN
     Indication: OVARIAN EPITHELIAL CANCER
     Dosage: 50 MG PER CYCLICAL
     Route: 041
     Dates: start: 20191122, end: 20191122
  2. SOLDESAM [Concomitant]
     Active Substance: DEXAMETHASONE
     Indication: ANAPHYLAXIS PROPHYLAXIS
     Dosage: 20 MG
     Route: 042
     Dates: start: 20191122, end: 20191122
  3. ONDANSETRON HYDROCHLORIDE. [Concomitant]
     Active Substance: ONDANSETRON HYDROCHLORIDE
     Indication: PROPHYLAXIS OF NAUSEA AND VOMITING
     Dosage: 8 MG PER DAY
     Route: 042
     Dates: start: 20191122, end: 20191122

REACTIONS (4)
  - Chest discomfort [Recovering/Resolving]
  - Hallucination, visual [Recovering/Resolving]
  - Dyspnoea at rest [Recovering/Resolving]
  - Flushing [Recovering/Resolving]

NARRATIVE: CASE EVENT DATE: 20191122
